FAERS Safety Report 9554828 (Version 1)
Quarter: 2013Q3

REPORT INFORMATION
  Report Type: Spontaneous
  Country: US (occurrence: US)
  Receive Date: 20130926
  Receipt Date: 20130926
  Transmission Date: 20140515
  Serious: No
  Sender: FDA-Public Use
  Company Number: US-BIOGENIDEC-2013BI089613

PATIENT
  Sex: Female

DRUGS (1)
  1. TYSABRI [Suspect]
     Indication: MULTIPLE SCLEROSIS
     Route: 042
     Dates: start: 20110310, end: 201303

REACTIONS (7)
  - Pain in extremity [Unknown]
  - Bone pain [Unknown]
  - Muscle spasms [Unknown]
  - Muscle twitching [Unknown]
  - Adverse event [Unknown]
  - Headache [Unknown]
  - Multiple sclerosis [Unknown]
